FAERS Safety Report 8688268 (Version 3)
Quarter: 2013Q2

REPORT INFORMATION
  Report Type: Report from Study
  Country: AR (occurrence: AR)
  Receive Date: 20120727
  Receipt Date: 20130617
  Transmission Date: 20140414
  Serious: Yes (Other)
  Sender: FDA-Public Use
  Company Number: AR-ROCHE-1093008

PATIENT
  Age: 80 Year
  Sex: Female

DRUGS (4)
  1. LUCENTIS [Suspect]
     Indication: MACULOPATHY
     Route: 050
     Dates: start: 201108
  2. LUCENTIS [Suspect]
     Route: 050
     Dates: start: 201110
  3. LUCENTIS [Suspect]
     Route: 050
  4. LUCENTIS [Suspect]
     Route: 050

REACTIONS (2)
  - Visual acuity reduced [Not Recovered/Not Resolved]
  - Drug ineffective [Unknown]
